FAERS Safety Report 8262093-3 (Version None)
Quarter: 2012Q2

REPORT INFORMATION
  Report Type: 
  Country: None (occurrence: None)
  Receive Date: 20120405
  Receipt Date: 20120329
  Transmission Date: 20120825
  Serious: Yes (Other)
  Sender: FDA-Public Use
  Company Number: PHHY2012DE026246

PATIENT
  Sex: Female
  Weight: 98 kg

DRUGS (8)
  1. XIPAMIDE [Concomitant]
     Indication: HYPERTENSION
     Dosage: 20 MG, QD
     Route: 048
     Dates: start: 20080609
  2. ALLOPURINOL [Concomitant]
     Indication: GOUT
     Dosage: 300 MG, QD
     Route: 048
     Dates: start: 20080824
  3. BISOPROLOL FUMARATE [Concomitant]
     Indication: HYPERTENSION
     Dosage: 10 MG, QD
     Route: 048
     Dates: start: 20030206
  4. OTHER ANTIHYPERTENSIVES [Concomitant]
  5. PANGROL [Concomitant]
     Indication: PANCREATIC DISORDER
     Dosage: 2000 IU, QD
     Route: 048
     Dates: start: 20030206
  6. DIOVAN HCT [Suspect]
     Dosage: 1 DF (320 MG VALS AND 12.5 MG HYDRO), DAILY
     Route: 048
     Dates: start: 20020719
  7. DICLAC [Concomitant]
     Indication: OSTEOARTHRITIS
     Dosage: UNK UKN, PRN
     Route: 048
     Dates: start: 20060621
  8. ALPHA-ADRENOCEPTOR BLOCKING AGENTS [Concomitant]

REACTIONS (2)
  - HYPERTENSION [None]
  - DIABETES MELLITUS [None]
